FAERS Safety Report 13108702 (Version 2)
Quarter: 2017Q1

REPORT INFORMATION
  Report Type: Spontaneous
  Country: US (occurrence: US)
  Receive Date: 20170112
  Receipt Date: 20170116
  Transmission Date: 20170428
  Serious: Yes (Hospitalization, Other)
  Sender: FDA-Public Use
  Company Number: US-BAYER-2017-006022

PATIENT
  Age: 69 Year
  Sex: Female
  Weight: 118 kg

DRUGS (7)
  1. CLARITIN [Suspect]
     Active Substance: LORATADINE
     Indication: NASOPHARYNGITIS
     Dosage: UNK
     Route: 048
     Dates: start: 20170104, end: 20170108
  2. MUCINEX [Concomitant]
     Active Substance: GUAIFENESIN
  3. ZITHROMAX [Concomitant]
     Active Substance: AZITHROMYCIN DIHYDRATE
     Indication: BRONCHITIS
  4. CHOLESTEROL- AND TRIGLYCERIDE REDUCERS [Concomitant]
     Active Substance: UNSPECIFIED INGREDIENT
  5. ZITHROMAX [Concomitant]
     Active Substance: AZITHROMYCIN DIHYDRATE
     Indication: NASOPHARYNGITIS
  6. CLARITIN [Suspect]
     Active Substance: LORATADINE
     Indication: NASAL CONGESTION
  7. CLARITIN [Suspect]
     Active Substance: LORATADINE
     Indication: BRONCHITIS
     Dosage: UNK
     Route: 048
     Dates: start: 20170110, end: 20170111

REACTIONS (9)
  - Transient ischaemic attack [Not Recovered/Not Resolved]
  - Nervousness [Not Recovered/Not Resolved]
  - Hypoaesthesia [Not Recovered/Not Resolved]
  - Hypoaesthesia oral [Not Recovered/Not Resolved]
  - Throat tightness [Not Recovered/Not Resolved]
  - Tremor [Not Recovered/Not Resolved]
  - Off label use [Unknown]
  - Blood pressure increased [Not Recovered/Not Resolved]
  - Tinnitus [Not Recovered/Not Resolved]

NARRATIVE: CASE EVENT DATE: 20170104
